FAERS Safety Report 7727106-3 (Version None)
Quarter: 2011Q3

REPORT INFORMATION
  Report Type: 
  Country: None (occurrence: None)
  Receive Date: 20110831
  Receipt Date: 20110526
  Transmission Date: 20111222
  Serious: Yes (Hospitalization)
  Sender: FDA-Public Use
  Company Number: US-001765

PATIENT
  Sex: Female
  Weight: 103 kg

DRUGS (10)
  1. VICODIN [Concomitant]
  2. CLINDAMYCIN [Concomitant]
  3. PRILOSEC [Concomitant]
  4. AMBIEN [Concomitant]
  5. IBUPROFEN [Concomitant]
  6. MELATONIN [Concomitant]
  7. ZITHROMAX [Concomitant]
  8. KUVAN [Suspect]
     Indication: PHENYLKETONURIA
     Dosage: 20 MG/KG QD ORAL
     Route: 048
     Dates: start: 20091007, end: 20100301
  9. TRAZODONE HCL [Concomitant]
  10. AMOXICILLIN [Concomitant]

REACTIONS (19)
  - ALANINE AMINOTRANSFERASE INCREASED [None]
  - MELAENA [None]
  - CHILLS [None]
  - VOMITING [None]
  - DYSPNOEA [None]
  - HAEMOGLOBIN DECREASED [None]
  - GASTRITIS [None]
  - ABDOMINAL DISCOMFORT [None]
  - BLOOD ALKALINE PHOSPHATASE INCREASED [None]
  - DUODENITIS [None]
  - PAIN IN JAW [None]
  - ABDOMINAL TENDERNESS [None]
  - NAUSEA [None]
  - ASPARTATE AMINOTRANSFERASE INCREASED [None]
  - GASTRIC ULCER [None]
  - SINUS TACHYCARDIA [None]
  - MYOCARDIAL INFARCTION [None]
  - CHEST DISCOMFORT [None]
  - PERFORATED ULCER [None]
